FAERS Safety Report 8468894 (Version 2)
Quarter: 2015Q2

REPORT INFORMATION
  Report Type: Report from Study
  Country: GB (occurrence: GB)
  Receive Date: 20120321
  Receipt Date: 20150512
  Transmission Date: 20150821
  Serious: Yes (Death, Hospitalization)
  Sender: FDA-Public Use
  Company Number: GB-ROCHE-1048855

PATIENT
  Age: 67 Year
  Sex: Male
  Weight: 85 kg

DRUGS (4)
  1. BEVACIZUMAB [Suspect]
     Active Substance: BEVACIZUMAB
     Indication: GASTRIC CANCER
     Dosage: DOSE: 655 MG,17/NOV/2011: LAST DOSE PRIOR TO ONSET OF SAE
     Route: 042
     Dates: start: 20110922
  2. EPIRUBICIN [Suspect]
     Active Substance: EPIRUBICIN
     Indication: GASTRIC CANCER
     Dosage: 50 MG, 17/NOV/2011: LAST DOSE PRIOR TO ONSET OF SAE
     Route: 042
     Dates: start: 20110922
  3. CISPLATIN. [Suspect]
     Active Substance: CISPLATIN
     Indication: GASTRIC CANCER
     Dosage: 120 MG, 17/NOV/2011: LAST DOSE PRIOR TO ONSET OF SAE
     Route: 042
     Dates: start: 20110922
  4. CAPECITABINE. [Suspect]
     Active Substance: CAPECITABINE
     Indication: GASTRIC CANCER
     Dosage: 5250 MG, 08/DEC/2011: LAST DOSE PRIOR TO ONSET OF SAE
     Route: 048
     Dates: start: 20110922

REACTIONS (2)
  - Gastrointestinal anastomotic leak [Recovered/Resolved with Sequelae]
  - Post procedural haemorrhage [Fatal]

NARRATIVE: CASE EVENT DATE: 20120123
